FAERS Safety Report 7808665-9 (Version None)
Quarter: 2011Q4

REPORT INFORMATION
  Report Type: 
  Country: None (occurrence: None)
  Receive Date: 20111012
  Receipt Date: 20111006
  Transmission Date: 20120403
  Serious: Yes (Death, Hospitalization)
  Sender: FDA-Public Use
  Company Number: US-CELGENEUS-163-21880-11100880

PATIENT
  Age: 56 Year
  Sex: Male

DRUGS (7)
  1. VALGANCICLOVIR [Concomitant]
     Route: 048
  2. FLUCONAZOLE [Concomitant]
     Route: 048
  3. REVLIMID [Suspect]
     Indication: MULTIPLE MYELOMA
     Dosage: 25 MILLIGRAM
     Route: 048
     Dates: start: 20110505
  4. QUETIAPINE [Concomitant]
     Route: 048
  5. PEPCID [Concomitant]
     Route: 048
  6. PREDNISONE [Concomitant]
     Route: 048
  7. MIRTAZAPINE [Concomitant]
     Route: 048

REACTIONS (2)
  - HYPERKALAEMIA [None]
  - DEATH [None]
